FAERS Safety Report 13191587 (Version 1)
Quarter: 2017Q1

REPORT INFORMATION
  Report Type: Spontaneous
  Country: US (occurrence: US)
  Receive Date: 20170207
  Receipt Date: 20170207
  Transmission Date: 20170428
  Serious: Yes (Other)
  Sender: FDA-Public Use
  Company Number: US-WEST-WARD PHARMACEUTICALS CORP.-US-H14001-17-00247

PATIENT
  Age: 56 Year
  Sex: Female

DRUGS (1)
  1. LIDOCAINE. [Suspect]
     Active Substance: LIDOCAINE
     Indication: NERVE BLOCK
     Dosage: TEST DOSE
     Route: 065

REACTIONS (4)
  - Injection site extravasation [Unknown]
  - Hypotension [Recovered/Resolved]
  - Off label use [Unknown]
  - Neuromuscular blockade [Recovered/Resolved]
